FAERS Safety Report 5275290-6 (Version None)
Quarter: 2007Q1

REPORT INFORMATION
  Report Type: 
  Country: None (occurrence: None)
  Receive Date: 20061213
  Receipt Date: 20051103
  Transmission Date: 20070707
  Serious: No
  Sender: FDA-Public Use
  Company Number: 2005UW12765

PATIENT
  Age: 45 Year
  Sex: Male
  Weight: 81.6475 kg

DRUGS (5)
  1. SEROQUEL [Suspect]
     Dosage: 200 MG QD PO
     Route: 048
  2. SEROQUEL [Suspect]
     Dosage: 50-100 - 2 AT HIS
  3. PROZAC [Concomitant]
  4. DIAZEPAM [Concomitant]
  5. RITALIN [Concomitant]

REACTIONS (2)
  - PARKINSONISM [None]
  - RESTLESS LEGS SYNDROME [None]
